FAERS Safety Report 24350982 (Version 1)
Quarter: 2024Q3

REPORT INFORMATION
  Report Type: Spontaneous
  Country: US (occurrence: None)
  Receive Date: 20240920
  Receipt Date: 20240920
  Transmission Date: 20241016
  Serious: No
  Sender: Public
  Company Number: None

PATIENT
  Age: 58 Year
  Sex: Female
  Weight: 76.5 kg

DRUGS (4)
  1. OTEZLA [Suspect]
     Active Substance: APREMILAST
     Indication: Psoriasis
     Dosage: ?30 MG TWICE A DAY ORAL
     Route: 048
     Dates: start: 20240620
  2. ADVIL [Concomitant]
     Active Substance: IBUPROFEN\IBUPROFEN SODIUM
  3. BENAZEPRIL [Concomitant]
     Active Substance: BENAZEPRIL HYDROCHLORIDE
  4. VITAMIN D [Concomitant]
     Active Substance: VITAMIN D NOS

REACTIONS (2)
  - Sinus headache [None]
  - Rhinorrhoea [None]

NARRATIVE: CASE EVENT DATE: 20240710
